FAERS Safety Report 17420388 (Version 1)
Quarter: 2020Q1

REPORT INFORMATION
  Report Type: Spontaneous
  Country: IN (occurrence: IN)
  Receive Date: 20200214
  Receipt Date: 20200214
  Transmission Date: 20200409
  Serious: No
  Sender: FDA-Public Use
  Company Number: IN-ROCHE-2550548

PATIENT
  Sex: Male
  Weight: 1.6 kg

DRUGS (8)
  1. FENTANYL. [Concomitant]
     Active Substance: FENTANYL
     Dosage: DOSE: 100 MCG/HOUR INFUSION
     Route: 064
  2. OXYTOCIN. [Concomitant]
     Active Substance: OXYTOCIN
     Indication: INDUCED LABOUR
     Route: 064
  3. CLARITHROMYCIN. [Concomitant]
     Active Substance: CLARITHROMYCIN
     Route: 064
  4. TAMIFLU [Suspect]
     Active Substance: OSELTAMIVIR PHOSPHATE
     Indication: H1N1 INFLUENZA
     Route: 064
  5. MIDAZOLAM HYDROCHLORIDE. [Concomitant]
     Active Substance: MIDAZOLAM HYDROCHLORIDE
     Dosage: MIDAZOLAM 1 MG/HOUR
     Route: 064
  6. HEPARIN [Concomitant]
     Active Substance: HEPARIN SODIUM
     Indication: THROMBOSIS PROPHYLAXIS
     Dosage: 40 MG OD AND THROMBOEMBOLISM DETERRENT STOCKINGS TO PREVENT DEEP VEIN THROMBOSIS
     Route: 064
  7. BETAMETHASONE. [Concomitant]
     Active Substance: BETAMETHASONE
     Indication: PROPHYLAXIS
     Dosage: TWO DOSES 24 HOURS APART
     Route: 064
  8. ATRACURIUM [Concomitant]
     Active Substance: ATRACURIUM
     Route: 064

REACTIONS (3)
  - Foetal exposure during pregnancy [Unknown]
  - Premature baby [Unknown]
  - Low birth weight baby [Unknown]
